FAERS Safety Report 13724559 (Version 2)
Quarter: 2017Q3

REPORT INFORMATION
  Report Type: Spontaneous
  Country: FI (occurrence: FI)
  Receive Date: 20170706
  Receipt Date: 20170717
  Transmission Date: 20171127
  Serious: Yes (Hospitalization)
  Sender: FDA-Public Use
  Company Number: FI-PFIZER INC-2017289307

PATIENT
  Age: 67 Year
  Sex: Female

DRUGS (13)
  1. DOCETAXEL. [Suspect]
     Active Substance: DOCETAXEL
     Indication: BREAST CANCER FEMALE
     Dosage: 85 UNK, UNK
     Route: 042
     Dates: start: 20170508, end: 20170508
  2. ESOMEPRAZOL SANDOZ [Concomitant]
     Indication: DYSPEPSIA
     Dosage: 20 MG, UNK
     Route: 048
  3. PEGORION [Concomitant]
     Active Substance: POLYETHYLENE GLYCOL 4000
     Indication: CONSTIPATION
     Dosage: 8 POUCHES/DAY AT THE MOST
     Route: 048
  4. PRIMPERAN [Concomitant]
     Active Substance: METOCLOPRAMIDE HYDROCHLORIDE
     Indication: NAUSEA
     Dosage: 10 (UNKNOWN DOSE UNIT), UNK
     Route: 048
  5. CAPECITABINE ACCORD [Concomitant]
     Active Substance: CAPECITABINE
     Dosage: UNK
     Route: 048
     Dates: start: 20170529, end: 20170602
  6. EMEND [Concomitant]
     Active Substance: APREPITANT
     Indication: PROPHYLAXIS OF NAUSEA AND VOMITING
     Dosage: UNK
     Route: 048
  7. DEXAMETASON [Concomitant]
     Active Substance: DEXAMETHASONE
     Indication: PROPHYLAXIS OF NAUSEA AND VOMITING
     Dosage: 12 MG, UNK
     Route: 048
  8. GRANISETRON STADA [Concomitant]
     Indication: PROPHYLAXIS OF NAUSEA AND VOMITING
     Dosage: 2 MG, UNK
     Route: 048
  9. PANADOL FORTE [Concomitant]
     Active Substance: ACETAMINOPHEN\CAFFEINE
     Dosage: 1 G, UNK
     Route: 048
  10. DOCETAXEL. [Suspect]
     Active Substance: DOCETAXEL
     Dosage: 85 UNK, UNK
     Route: 042
     Dates: start: 20170529, end: 20170529
  11. CAPECITABINE ACCORD [Concomitant]
     Active Substance: CAPECITABINE
     Indication: BREAST CANCER FEMALE
     Dosage: UNK
     Route: 048
     Dates: start: 20170508, end: 20170512
  12. ESOMEPRAZOL SANDOZ [Concomitant]
     Indication: PROPHYLAXIS
  13. IMOCUR [Concomitant]
     Indication: DIARRHOEA
     Dosage: 2 MG, UNK
     Route: 048

REACTIONS (2)
  - C-reactive protein increased [Unknown]
  - Pyrexia [Recovered/Resolved]

NARRATIVE: CASE EVENT DATE: 20170512
